FAERS Safety Report 14519910 (Version 2)
Quarter: 2018Q1

REPORT INFORMATION
  Report Type: Report from Study
  Country: US (occurrence: US)
  Receive Date: 20180212
  Receipt Date: 20180223
  Transmission Date: 20180509
  Serious: Yes (Hospitalization)
  Sender: FDA-Public Use
  Company Number: US-ASTRAZENECA-2018SE18096

PATIENT
  Age: 18019 Day
  Sex: Female
  Weight: 68 kg

DRUGS (8)
  1. ADXS11-001 [Suspect]
     Active Substance: INVESTIGATIONAL PRODUCT
     Indication: PAPILLOMA VIRAL INFECTION
     Dosage: 1 X 10 9 CFU, UNK
     Route: 042
     Dates: start: 20180126, end: 20180126
  2. MIRALAX [Concomitant]
     Active Substance: POLYETHYLENE GLYCOL 3350
     Route: 065
     Dates: start: 20170417
  3. FENTANYL. [Concomitant]
     Active Substance: FENTANYL
     Route: 065
     Dates: start: 20170714
  4. METHYLPHENIDATE. [Concomitant]
     Active Substance: METHYLPHENIDATE
     Route: 065
     Dates: start: 20170512
  5. MAGNESIUM [Concomitant]
     Active Substance: MAGNESIUM
     Route: 065
     Dates: start: 20170519
  6. SCOPOLAMINE [Concomitant]
     Active Substance: SCOPOLAMINE
     Route: 065
     Dates: start: 20171201
  7. MEDI4736 [Suspect]
     Active Substance: DURVALUMAB
     Indication: PAPILLOMA VIRAL INFECTION
     Dosage: 595 MG MILLIGRAM(S), UNK
     Route: 042
     Dates: start: 20180126, end: 20180126
  8. SENOKOT [Concomitant]
     Active Substance: SENNOSIDES
     Route: 065
     Dates: start: 20170417

REACTIONS (2)
  - Nausea [Unknown]
  - Vomiting [Unknown]

NARRATIVE: CASE EVENT DATE: 20180127
